FAERS Safety Report 5474295-X (Version None)
Quarter: 2007Q4

REPORT INFORMATION
  Report Type: 
  Country: None (occurrence: None)
  Receive Date: 20071002
  Receipt Date: 20070625
  Transmission Date: 20080405
  Serious: No
  Sender: FDA-Public Use
  Company Number: US-ASTRAZENECA-2007UW15094

PATIENT
  Age: 80 Year
  Sex: Female

DRUGS (3)
  1. ARIMIDEX [Suspect]
     Indication: BREAST CANCER
     Route: 048
     Dates: start: 20070601
  2. PROCARDIA [Concomitant]
  3. CRESTOR [Concomitant]

REACTIONS (3)
  - BURNING SENSATION [None]
  - DYSPEPSIA [None]
  - VISUAL DISTURBANCE [None]
